FAERS Safety Report 7901894-5 (Version None)
Quarter: 2011Q4

REPORT INFORMATION
  Report Type: 
  Country: None (occurrence: None)
  Receive Date: 20111108
  Receipt Date: 20111028
  Transmission Date: 20120403
  Serious: Yes (Death, Hospitalization, Other)
  Sender: FDA-Public Use
  Company Number: US-BAXTER-2011BH030704

PATIENT
  Sex: Male

DRUGS (1)
  1. DIANEAL [Suspect]
     Indication: PERITONEAL DIALYSIS
     Route: 033
     Dates: end: 20110101

REACTIONS (5)
  - PERITONITIS BACTERIAL [None]
  - HERPES ZOSTER [None]
  - PERIRECTAL ABSCESS [None]
  - ENCEPHALOPATHY [None]
  - CONSTIPATION [None]
